FAERS Safety Report 4446647-8 (Version None)
Quarter: 2004Q3

REPORT INFORMATION
  Report Type: 
  Country: None (occurrence: None)
  Receive Date: 20040902
  Receipt Date: 20040823
  Transmission Date: 20050211
  Serious: No
  Sender: FDA-Public Use
  Company Number: 2004-119599-NL

PATIENT
  Age: 25 Year
  Sex: Female

DRUGS (3)
  1. ESTROGEN PROGESTRON [Suspect]
     Indication: CONTRACEPTION
     Dosage: DF
     Route: 048
     Dates: start: 20010601
  2. BUPROPION HYDROCHLORIDE [Suspect]
     Indication: SMOKING CESSATION THERAPY
     Dosage: 150 MG
     Route: 048
     Dates: start: 20040605, end: 20040617
  3. FEXOFENADINE HCL [Concomitant]

REACTIONS (3)
  - DRUG INTERACTION [None]
  - HAEMORRHAGE [None]
  - SEASONAL ALLERGY [None]
